FAERS Safety Report 5303227-X (Version None)
Quarter: 2007Q2

REPORT INFORMATION
  Report Type: 
  Country: None (occurrence: None)
  Receive Date: 20070420
  Receipt Date: 20070417
  Transmission Date: 20071010
  Serious: Yes (Other)
  Sender: FDA-Public Use
  Company Number: FR-ELI_LILLY_AND_COMPANY-FR200610004537

PATIENT
  Age: 58 Year
  Sex: Male
  Weight: 108 kg

DRUGS (6)
  1. GEMZAR [Suspect]
     Indication: BLADDER CANCER
     Dosage: 2000 MG, OTHER
     Route: 042
     Dates: start: 20060321, end: 20070320
  2. CISPLATIN [Concomitant]
     Indication: BLADDER CANCER
     Dosage: 100 MG/M2, OTHER
     Route: 042
     Dates: start: 20060321, end: 20060426
  3. CARBOPLATIN [Concomitant]
     Indication: BLADDER CANCER
     Dosage: UNK, UNK
     Route: 042
     Dates: start: 20060612, end: 20070320
  4. ATENOLOL [Concomitant]
     Indication: HYPERTENSION
     Route: 048
  5. TRIATEC [Concomitant]
     Indication: HYPERTENSION
     Route: 048
  6. INSULIN [Concomitant]
     Indication: DIABETES MELLITUS
     Route: 058

REACTIONS (5)
  - HYPERTENSION [None]
  - MALIGNANT NEOPLASM PROGRESSION [None]
  - MICROANGIOPATHY [None]
  - RENAL FAILURE [None]
  - THROMBOCYTOPENIA [None]
